FAERS Safety Report 4796411-5 (Version None)
Quarter: 2005Q4

REPORT INFORMATION
  Report Type: 
  Country: None (occurrence: None)
  Receive Date: 20051011
  Receipt Date: 20041221
  Transmission Date: 20060501
  Serious: Yes (Hospitalization)
  Sender: FDA-Public Use
  Company Number: 04P-163-0284187-00

PATIENT
  Age: 59 Year
  Sex: Male
  Weight: 153 kg

DRUGS (25)
  1. TRICOR [Suspect]
     Indication: HYPERTRIGLYCERIDAEMIA
     Dosage: 160 MG, 1 IN 1 D, PER ORAL
     Route: 048
     Dates: end: 20040830
  2. ACETLYSALICYLIC ACID [Concomitant]
  3. FUROSEMIDE [Concomitant]
  4. THEOPHYLLINE [Concomitant]
  5. SERTRALINE HYDROCHLORIDE [Concomitant]
  6. METOCLOPRAMIDE [Concomitant]
  7. BUPROPION HYDROCHLORIDE [Concomitant]
  8. TOPIRAMATE [Concomitant]
  9. ZOLPIDEM TARTRATE [Concomitant]
  10. INSULIN LISPRO [Concomitant]
  11. HUMULIN 70/30 [Concomitant]
  12. ISOSORBIDE MONONITRATE [Concomitant]
  13. LANSOPRAZOLE [Concomitant]
  14. FENTANYL [Concomitant]
  15. ZETIA [Concomitant]
  16. OXYCOCET [Concomitant]
  17. OLANZAPINE [Concomitant]
  18. SERETIDE MITE [Concomitant]
  19. COMBIVENT [Concomitant]
  20. POTASSIUM [Concomitant]
  21. ENALAPRIL [Concomitant]
  22. METOLAZONE [Concomitant]
  23. SUCRALFATE [Concomitant]
  24. SALBUTAMOL [Concomitant]
  25. IPRATROPIUM BROMIDE [Concomitant]

REACTIONS (1)
  - RHABDOMYOLYSIS [None]
